FAERS Safety Report 25612008 (Version 2)
Quarter: 2025Q3

REPORT INFORMATION
  Report Type: Spontaneous
  Country: US (occurrence: US)
  Receive Date: 20250728
  Receipt Date: 20250811
  Transmission Date: 20251020
  Serious: No
  Sender: MYLAN
  Company Number: US-MYLANLABS-2025M1061628

PATIENT

DRUGS (4)
  1. LISDEXAMFETAMINE DIMESYLATE [Suspect]
     Active Substance: LISDEXAMFETAMINE DIMESYLATE
     Indication: Product used for unknown indication
  2. LISDEXAMFETAMINE DIMESYLATE [Suspect]
     Active Substance: LISDEXAMFETAMINE DIMESYLATE
     Route: 065
  3. LISDEXAMFETAMINE DIMESYLATE [Suspect]
     Active Substance: LISDEXAMFETAMINE DIMESYLATE
     Route: 065
  4. LISDEXAMFETAMINE DIMESYLATE [Suspect]
     Active Substance: LISDEXAMFETAMINE DIMESYLATE

REACTIONS (8)
  - Blepharospasm [Unknown]
  - Ocular discomfort [Recovered/Resolved]
  - Loss of personal independence in daily activities [Unknown]
  - Insomnia [Recovered/Resolved]
  - Irritability [Unknown]
  - Vision blurred [Unknown]
  - Therapeutic response changed [Unknown]
  - Product substitution issue [Unknown]
